FAERS Safety Report 15154942 (Version 1)
Quarter: 2018Q3

REPORT INFORMATION
  Report Type: Spontaneous
  Country: US (occurrence: US)
  Receive Date: 20180717
  Receipt Date: 20180717
  Transmission Date: 20181010
  Serious: Yes (Hospitalization)
  Sender: FDA-Public Use
  Company Number: US-TEVA-2018-US-924586

PATIENT
  Age: 34 Year
  Sex: Female

DRUGS (1)
  1. COPAXONE [Suspect]
     Active Substance: GLATIRAMER ACETATE
     Indication: MULTIPLE SCLEROSIS
     Route: 058
     Dates: start: 20160415, end: 20180319

REACTIONS (5)
  - Muscular weakness [Unknown]
  - Contusion [Unknown]
  - Ligament sprain [Unknown]
  - Joint swelling [Unknown]
  - Fall [Unknown]

NARRATIVE: CASE EVENT DATE: 201803
